FAERS Safety Report 7032385-4 (Version None)
Quarter: 2010Q4

REPORT INFORMATION
  Report Type: 
  Country: None (occurrence: None)
  Receive Date: 20101007
  Receipt Date: 20100827
  Transmission Date: 20110411
  Serious: Yes (Hospitalization)
  Sender: FDA-Public Use
  Company Number: HK-BRISTOL-MYERS SQUIBB COMPANY-15269061

PATIENT
  Age: 69 Year
  Sex: Male
  Weight: 37 kg

DRUGS (3)
  1. CETUXIMAB [Suspect]
     Indication: GASTROOESOPHAGEAL CANCER
     Dosage: RECENT INF:18AUG10,NO OF INF:17,FORMULATION:5MG/ML
     Route: 042
     Dates: start: 20100409, end: 20100825
  2. CISPLATIN [Suspect]
     Indication: GASTROOESOPHAGEAL CANCER
     Dosage: RECENT INF:04AUG10,DOSAGE:ON DAY 1 OF CYCLE
     Route: 042
     Dates: start: 20100409, end: 20100825
  3. XELODA [Suspect]
     Indication: GASTROOESOPHAGEAL CANCER
     Dosage: RECENT INF:18AUG2010,DOSAGE:ON DAY 1-15
     Route: 048
     Dates: start: 20100409, end: 20100825

REACTIONS (1)
  - PALMAR-PLANTAR ERYTHRODYSAESTHESIA SYNDROME [None]
